FAERS Safety Report 10343647 (Version 1)
Quarter: 2014Q3

REPORT INFORMATION
  Report Type: Spontaneous
  Country: US (occurrence: US)
  Receive Date: 20140725
  Receipt Date: 20140725
  Transmission Date: 20150326
  Serious: Yes (Other)
  Sender: FDA-Public Use
  Company Number: US-TEVA-496170USA

PATIENT

DRUGS (4)
  1. PRAZOSIN [Suspect]
     Active Substance: PRAZOSIN
  2. TRAMADOL [Suspect]
     Active Substance: TRAMADOL
  3. TRAZODONE [Suspect]
     Active Substance: TRAZODONE HYDROCHLORIDE
  4. METOCLOPRAMIDE. [Suspect]
     Active Substance: METOCLOPRAMIDE

REACTIONS (1)
  - Coeliac disease [Unknown]
